FAERS Safety Report 9023344 (Version 1)
Quarter: 2013Q1

REPORT INFORMATION
  Report Type: Spontaneous
  Country: US (occurrence: US)
  Receive Date: 20130120
  Receipt Date: 20130120
  Transmission Date: 20140127
  Serious: No
  Sender: FDA-Public Use
  Company Number: US-ALLERGAN-1213545US

PATIENT
  Age: 30 Year
  Sex: Female

DRUGS (1)
  1. BOTOX? [Suspect]
     Indication: SKIN WRINKLING

REACTIONS (2)
  - Skin tightness [Unknown]
  - Headache [Not Recovered/Not Resolved]
